FAERS Safety Report 7782664-8 (Version None)
Quarter: 2011Q3

REPORT INFORMATION
  Report Type: 
  Country: None (occurrence: None)
  Receive Date: 20110928
  Receipt Date: 20110915
  Transmission Date: 20111222
  Serious: No
  Sender: FDA-Public Use
  Company Number: PHHY2011US55702

PATIENT
  Sex: Female
  Weight: 62.7 kg

DRUGS (13)
  1. ZEGERID [Concomitant]
     Dosage: 1 DF, DAILY
     Route: 048
  2. PRIMIDONE [Concomitant]
     Dosage: 50 MG, BID
     Route: 048
  3. DALIVIT [Concomitant]
     Dosage: UNK UKN, UNK
     Route: 048
  4. NORVASC [Concomitant]
     Dosage: 2.5 MG, BID
     Route: 048
  5. RELPAX [Concomitant]
     Indication: MIGRAINE
     Dosage: UNK UKN, PRN
  6. ESTRACE [Concomitant]
     Dosage: 2 MG, UNK
     Route: 048
  7. GILENYA [Suspect]
     Indication: MULTIPLE SCLEROSIS
     Dosage: 0.5 MG, QD
     Route: 048
     Dates: start: 20110419, end: 20110907
  8. PAROXETINE [Concomitant]
     Dosage: 40 MG, UNK
     Route: 048
  9. CLONAZEPAM [Concomitant]
     Dosage: 0.5 MG, UNK
     Route: 048
  10. PHENOBARBITAL TAB [Concomitant]
     Indication: TREMOR
     Dosage: 30 MG, 1 TAB HS FOR 2 WEEKS, 2 TAB HS FOR 1 WEEK, THEN STOP
     Route: 048
  11. UNIVASC [Concomitant]
     Dosage: 15 MG, UNK
     Route: 048
  12. ATENOLOL [Concomitant]
     Dosage: 25 MG, BID
     Route: 048
  13. MELOXICAM [Concomitant]
     Dosage: 7.5 MG, DAILY
     Route: 048

REACTIONS (2)
  - VISUAL ACUITY REDUCED [None]
  - TREMOR [None]
